FAERS Safety Report 7557770-3 (Version None)
Quarter: 2011Q2

REPORT INFORMATION
  Report Type: 
  Country: None (occurrence: None)
  Receive Date: 20110620
  Receipt Date: 20110615
  Transmission Date: 20111010
  Serious: Yes (Life-Threatening)
  Sender: FDA-Public Use
  Company Number: GB-ASTRAZENECA-2011SE36347

PATIENT
  Age: 29 Year
  Sex: Female
  Weight: 46 kg

DRUGS (16)
  1. MEDROXYPROGESTERONE ACETATE [Concomitant]
     Dosage: 1 DF
     Dates: start: 20080219
  2. AZITHROMYCIN [Concomitant]
     Dates: start: 20080102
  3. FOLIC ACID [Concomitant]
     Dates: start: 20110503
  4. PULMOZYME [Concomitant]
     Dates: start: 20080102
  5. PHYTONADIONE [Concomitant]
     Dates: start: 20080430
  6. TPN [Concomitant]
     Dates: start: 20080123
  7. OMEPRAZOLE [Concomitant]
     Dates: start: 20100113
  8. TOBRAMYCIN [Concomitant]
     Indication: CYSTIC FIBROSIS
     Dosage: 300 MG
     Route: 042
     Dates: start: 20110429, end: 20110502
  9. MEROPENEM [Suspect]
     Indication: CYSTIC FIBROSIS
     Route: 042
     Dates: start: 20110429, end: 20110508
  10. FERROUS SULFATE TAB [Concomitant]
     Dates: start: 20100113
  11. SALMETEROL XINAFOATE [Concomitant]
     Dates: start: 20080102
  12. VITAMIN A AND D CONCENTRATE [Concomitant]
     Dates: start: 20080430
  13. VITAMIN E [Concomitant]
     Dates: start: 20080430
  14. CREON [Concomitant]
     Dates: start: 20100106
  15. TERBUTALINE SULFATE [Concomitant]
     Dates: start: 20080102
  16. COLOMYCIN [Concomitant]
     Indication: CYSTIC FIBROSIS
     Dosage: 1MIU
     Route: 042
     Dates: start: 20110504, end: 20110508

REACTIONS (2)
  - PRODUCT SUBSTITUTION ISSUE [None]
  - ANAPHYLACTIC REACTION [None]
